FAERS Safety Report 9383901 (Version 1)
Quarter: 2013Q3

REPORT INFORMATION
  Report Type: Spontaneous
  Country: US (occurrence: US)
  Receive Date: 20130705
  Receipt Date: 20130705
  Transmission Date: 20140515
  Serious: No
  Sender: FDA-Public Use
  Company Number: US-B.I. PHARMACEUTICALS,INC./RIDGEFIELD-2013-BI-18806BP

PATIENT
  Age: 67 Year
  Sex: Female
  Weight: 96 kg

DRUGS (11)
  1. PRADAXA [Suspect]
     Indication: ATRIAL FIBRILLATION
     Dosage: 300 MG
     Route: 048
     Dates: start: 20130424
  2. GLEEVAC [Concomitant]
     Indication: LEUKAEMIA
     Dosage: 600 MG
     Route: 048
  3. VALTREX [Concomitant]
     Dosage: 500 MG
     Route: 048
  4. LOPRESSOR [Concomitant]
     Indication: HYPERTENSION
     Dosage: 50 MG
     Route: 048
  5. LASIX [Concomitant]
     Dosage: 40 MG
     Route: 048
  6. MAGNESIUM [Concomitant]
     Dosage: 800 MG
     Route: 048
  7. BACLOFEN [Concomitant]
     Indication: PAIN
     Dosage: 30 MG
     Route: 048
  8. PHENERGAN [Concomitant]
     Indication: NAUSEA
     Dosage: 25 MG
     Route: 048
  9. REGLAN [Concomitant]
     Indication: NAUSEA
     Dosage: 5 MG
     Route: 048
  10. ISOSORBIDE [Concomitant]
     Indication: HYPERTENSION
     Dosage: 30 MG
     Route: 048
  11. ASPIRIN [Concomitant]
     Dosage: 81 MG
     Route: 048

REACTIONS (1)
  - Skin exfoliation [Not Recovered/Not Resolved]
